FAERS Safety Report 18865421 (Version 1)
Quarter: 2021Q1

REPORT INFORMATION
  Report Type: Spontaneous
  Country: DE (occurrence: DE)
  Receive Date: 20210208
  Receipt Date: 20210208
  Transmission Date: 20210420
  Serious: Yes (Other)
  Sender: FDA-Public Use
  Company Number: DE-PFIZER INC-2021099111

PATIENT
  Age: 46 Year
  Sex: Female
  Weight: 115 kg

DRUGS (1)
  1. CYTOTEC [Suspect]
     Active Substance: MISOPROSTOL
     Indication: LABOUR INDUCTION
     Dosage: 2 DF (TOTAL); FIRST DOSE AT 14:00 AND THE SECOND DOSE AT 17:30
     Route: 048
     Dates: start: 20201202, end: 20201202

REACTIONS (7)
  - Haemorrhage [Recovered/Resolved]
  - Vulvovaginal injury [Recovering/Resolving]
  - Vacuum extractor delivery [Recovered/Resolved]
  - Uterine tachysystole [Recovered/Resolved]
  - Perineal injury [Recovering/Resolving]
  - Off label use [Unknown]
  - Labour pain [Recovered/Resolved]

NARRATIVE: CASE EVENT DATE: 20201202
